FAERS Safety Report 9410770 (Version 1)
Quarter: 2013Q3

REPORT INFORMATION
  Report Type: Spontaneous
  Country: FR (occurrence: FR)
  Receive Date: 20130719
  Receipt Date: 20130719
  Transmission Date: 20140515
  Serious: Yes (Hospitalization)
  Sender: FDA-Public Use
  Company Number: FR-ELI_LILLY_AND_COMPANY-FR201307002344

PATIENT
  Age: 83 Year
  Sex: Male

DRUGS (8)
  1. UMULINE NPH [Suspect]
     Indication: TYPE 2 DIABETES MELLITUS
     Dosage: 14 IU, EACH MORNING
     Route: 058
     Dates: end: 20130215
  2. UMULINE NPH [Suspect]
     Dosage: 12 IU, EACH EVENING
     Route: 058
     Dates: end: 20130215
  3. CREON [Concomitant]
  4. ESOMEPRAZOL                        /01479301/ [Concomitant]
  5. NORSET [Concomitant]
  6. RISPERIDONE [Concomitant]
  7. CHIBRO-PROSCAR [Concomitant]
  8. BRICANYL [Concomitant]

REACTIONS (3)
  - Fall [Recovered/Resolved]
  - Rhabdomyolysis [Recovered/Resolved]
  - Hypoglycaemia [Recovered/Resolved]
